FAERS Safety Report 13822944 (Version 3)
Quarter: 2018Q1

REPORT INFORMATION
  Report Type: Spontaneous
  Country: US (occurrence: US)
  Receive Date: 20170801
  Receipt Date: 20180102
  Transmission Date: 20180508
  Serious: No
  Sender: FDA-Public Use
  Company Number: US-LUNDBECK-DKLU2034355

PATIENT
  Sex: Female

DRUGS (2)
  1. NORTHERA [Suspect]
     Active Substance: DROXIDOPA
     Indication: SYNCOPE
     Route: 048
     Dates: start: 20170619
  2. NORTHERA [Suspect]
     Active Substance: DROXIDOPA
     Indication: ORTHOSTATIC HYPOTENSION
     Route: 065
     Dates: start: 20170622

REACTIONS (7)
  - Dizziness [Unknown]
  - Headache [Unknown]
  - Drug administration error [Unknown]
  - Feeling abnormal [Unknown]
  - Cold sweat [Unknown]
  - Blood pressure fluctuation [Unknown]
  - Palpitations [Unknown]
